FAERS Safety Report 23860348 (Version 1)
Quarter: 2024Q2

REPORT INFORMATION
  Report Type: Spontaneous
  Country: US (occurrence: US)
  Receive Date: 20240515
  Receipt Date: 20240515
  Transmission Date: 20240716
  Serious: Yes (Other)
  Sender: FDA-Public Use
  Company Number: US-009507513-2405USA003353

PATIENT
  Sex: Male

DRUGS (1)
  1. TICE BCG [Suspect]
     Active Substance: BACILLUS CALMETTE-GUERIN SUBSTRAIN TICE LIVE ANTIGEN
     Indication: Bladder cancer
     Dosage: 1 TREATMENT/6 WEEKS, TOTALLY RECEIVED 6 TREATMENTS
     Route: 043
     Dates: end: 202311

REACTIONS (3)
  - Sepsis [Unknown]
  - Escherichia test positive [Unknown]
  - Cystoscopy [Unknown]

NARRATIVE: CASE EVENT DATE: 20240501
